FAERS Safety Report 7447914-6 (Version None)
Quarter: 2011Q2

REPORT INFORMATION
  Report Type: 
  Country: None (occurrence: None)
  Receive Date: 20110429
  Receipt Date: 20100304
  Transmission Date: 20111010
  Serious: No
  Sender: FDA-Public Use
  Company Number: US-ASTRAZENECA-2010SE04444

PATIENT
  Sex: Female
  Weight: 65.8 kg

DRUGS (1)
  1. NEXIUM [Suspect]
     Indication: DYSPEPSIA
     Route: 048

REACTIONS (7)
  - MUSCLE SPASMS [None]
  - DRY MOUTH [None]
  - WEIGHT INCREASED [None]
  - HYPOAESTHESIA [None]
  - NAIL INFECTION [None]
  - BACK PAIN [None]
  - PARAESTHESIA [None]
